FAERS Safety Report 5563076-4 (Version None)
Quarter: 2007Q4

REPORT INFORMATION
  Report Type: 
  Country: None (occurrence: None)
  Receive Date: 20071217
  Receipt Date: 20071213
  Transmission Date: 20080405
  Serious: Yes (Hospitalization)
  Sender: FDA-Public Use
  Company Number: A0698810A

PATIENT
  Age: 50 Year
  Sex: Male

DRUGS (3)
  1. ADVAIR DISKUS 100/50 [Suspect]
     Indication: ASTHMA
     Route: 055
  2. PROVENTIL [Concomitant]
  3. PREDNISONE [Concomitant]

REACTIONS (2)
  - CATARACT [None]
  - HAEMOLYTIC ANAEMIA [None]
